FAERS Safety Report 5815677-3 (Version None)
Quarter: 2008Q3

REPORT INFORMATION
  Report Type: 
  Country: None (occurrence: None)
  Receive Date: 20080716
  Receipt Date: 20080701
  Transmission Date: 20090109
  Serious: Yes (Other)
  Sender: FDA-Public Use
  Company Number: 1-16378526

PATIENT
  Age: 32 Year
  Sex: Female

DRUGS (5)
  1. WARFARIN SODIUM [Suspect]
     Indication: INTERNATIONAL NORMALISED RATIO
     Dosage: ORAL
     Route: 048
     Dates: start: 20050101, end: 20080101
  2. CELLCEPT [Suspect]
     Indication: SYSTEMIC LUPUS ERYTHEMATOSUS
     Dates: start: 20080320
  3. MESTINON [Concomitant]
  4. CYCLOPHOSPHAMIDE [Concomitant]
  5. ENOXAPARIN SODIUM [Concomitant]

REACTIONS (9)
  - APHASIA [None]
  - ASTHENIA [None]
  - DIARRHOEA [None]
  - DRUG INTERACTION [None]
  - INTERNATIONAL NORMALISED RATIO FLUCTUATION [None]
  - SPUTUM ABNORMAL [None]
  - SWOLLEN TONGUE [None]
  - TIC [None]
  - TONGUE PARALYSIS [None]
